FAERS Safety Report 6258364-2 (Version None)
Quarter: 2009Q3

REPORT INFORMATION
  Report Type: 
  Country: None (occurrence: None)
  Receive Date: 20090707
  Receipt Date: 20090624
  Transmission Date: 20100115
  Serious: Yes (Other)
  Sender: FDA-Public Use
  Company Number: US-ELI_LILLY_AND_COMPANY-US200902000765

PATIENT
  Sex: Male
  Weight: 64.399 kg

DRUGS (53)
  1. ZYPREXA [Suspect]
     Dosage: 5 MG, EACH EVENING
     Dates: start: 20061205, end: 20061212
  2. ZYPREXA [Suspect]
     Dosage: 15 MG, UNK
     Dates: start: 20061212, end: 20070109
  3. ZYPREXA [Suspect]
     Dosage: 20 MG, UNK
     Dates: start: 20070109, end: 20070522
  4. ZYPREXA [Suspect]
     Dosage: 30 MG, EACH EVENING
     Dates: start: 20070522, end: 20070717
  5. ZYPREXA [Suspect]
     Dosage: 35 MG, EACH EVENING
     Dates: start: 20070717, end: 20080826
  6. ZYPREXA [Suspect]
     Dosage: 25 MG, EACH EVENING
     Dates: start: 20080826, end: 20081016
  7. ZYPREXA [Suspect]
     Dosage: 35 MG, EACH EVENING
     Dates: start: 20081016, end: 20081104
  8. ZYPREXA [Suspect]
     Dosage: 20 MG, EACH EVENING
     Dates: start: 20081104, end: 20081118
  9. ZYPREXA [Suspect]
     Dosage: 10 MG, EACH EVENING
     Dates: start: 20081118, end: 20081125
  10. ZYPREXA [Suspect]
     Dosage: 5 MG, EACH EVENING
     Dates: start: 20081125, end: 20081202
  11. CLOZAPINE [Concomitant]
     Dosage: 25 MG, EACH EVENING
     Dates: start: 20081007, end: 20081014
  12. CLOZAPINE [Concomitant]
     Dosage: 50 MG, UNK
     Dates: start: 20081014, end: 20081016
  13. CLOZAPINE [Concomitant]
     Dosage: 12.5 MG, UNK
  14. CLOZAPINE [Concomitant]
     Dosage: 100 MG, UNK
  15. CLOZAPINE [Concomitant]
     Dosage: UNK, UNK
     Dates: start: 20090113, end: 20090501
  16. TRAZODONE HCL [Concomitant]
     Dosage: UNK, UNK
     Dates: end: 20081104
  17. DEPAKOTE [Concomitant]
     Dosage: 750 MG, EACH EVENING
     Dates: end: 20070327
  18. DEPAKOTE [Concomitant]
     Dosage: 500 MG, EACH EVENING
     Dates: start: 20070327, end: 20070402
  19. DEPAKOTE [Concomitant]
     Dosage: 250 MG, EACH EVENING
     Dates: start: 20070402, end: 20070409
  20. DEPAKOTE [Concomitant]
     Dosage: 750 MG, EACH EVENING
     Dates: start: 20081104, end: 20081111
  21. DEPAKOTE [Concomitant]
     Dosage: 500 MG, EACH EVENING
     Dates: start: 20081111, end: 20081118
  22. DEPAKOTE [Concomitant]
     Dosage: 250 MG, EACH EVENING
     Dates: start: 20081118, end: 20081125
  23. DEPAKOTE [Concomitant]
     Dosage: 500 MG, 2/D
     Dates: start: 20081110, end: 20081202
  24. DEPAKOTE [Concomitant]
     Dosage: 750 MG, EACH EVENING
     Dates: start: 20081202, end: 20081209
  25. DEPAKOTE [Concomitant]
     Dosage: 500 MG, EACH EVENING
     Dates: start: 20081209, end: 20081216
  26. DEPAKOTE [Concomitant]
     Dosage: 250 MG, EACH EVENING
     Dates: start: 20081216, end: 20081223
  27. LITHIUM [Concomitant]
     Dosage: 300 MG, 2/D
     Dates: start: 20081021, end: 20081110
  28. LITHIUM [Concomitant]
     Dosage: 300 MG, EACH EVENING
     Dates: start: 20081110, end: 20081230
  29. LITHIUM [Concomitant]
     Dosage: 300 MG, 2/D
     Dates: start: 20081230
  30. KEPPRA [Concomitant]
     Dosage: 500 MG, EACH EVENING
     Dates: start: 20070327, end: 20070424
  31. KEPPRA [Concomitant]
     Dosage: 750 MG, EACH EVENING
     Dates: start: 20070424, end: 20070522
  32. RESTORIL [Concomitant]
     Dosage: 30 MG, EACH EVENING
     Dates: end: 20071030
  33. RESTORIL [Concomitant]
     Dosage: 15 MG, EACH EVENING
     Dates: start: 20071030, end: 20071218
  34. RESTORIL [Concomitant]
     Dosage: 7.5 MG, EACH EVENING
     Dates: start: 20081218, end: 20090205
  35. RESTORIL [Concomitant]
     Dosage: 15 MG, EACH EVENING
     Dates: start: 20081216
  36. HALDOL [Concomitant]
     Dosage: 100 MG, MONTHLY (1/M)
     Route: 030
     Dates: end: 20070109
  37. HALDOL [Concomitant]
     Dosage: 50 MG, MONTHLY (1/M)
     Route: 030
     Dates: start: 20070109, end: 20080909
  38. CELEXA [Concomitant]
     Dosage: 20 MG, EACH MORNING
     Dates: start: 20070306, end: 20070911
  39. CELEXA [Concomitant]
     Dosage: 40 MG, EACH MORNING
     Dates: start: 20070911
  40. KLONOPIN [Concomitant]
     Dosage: 1 MG, EACH EVENING
     Dates: start: 20080212, end: 20081216
  41. XANAX [Concomitant]
     Indication: PANIC ATTACK
     Dosage: 1 MG, AS NEEDED
     Dates: start: 20071030
  42. ARTANE [Concomitant]
     Dosage: 2 MG, 2/D
     Dates: start: 20081118, end: 20081230
  43. ARTANE [Concomitant]
     Dosage: 2 MG, 3/D
     Dates: start: 20081230
  44. PROLIXIN [Concomitant]
     Dosage: 7.5 MG, EACH EVENING
     Dates: start: 20081118, end: 20081230
  45. PROLIXIN [Concomitant]
     Dosage: 15 MG, DAILY (1/D)
     Dates: start: 20081230
  46. GABAPENTIN [Concomitant]
     Dosage: 300 MG, EACH EVENING
     Dates: start: 20081202
  47. GABAPENTIN [Concomitant]
     Dosage: 300 MG, 2/D
     Dates: start: 20081209, end: 20081216
  48. GABAPENTIN [Concomitant]
     Dosage: 900 MG, DAILY (1/D)
     Dates: start: 20081216
  49. COGENTIN [Concomitant]
     Dosage: 2 MG, EACH MORNING
     Dates: end: 20061219
  50. REMERON [Concomitant]
     Dosage: 30 MG, EACH EVENING
     Dates: start: 20061205, end: 20061212
  51. MINIPRESS /SCH/ [Concomitant]
     Dosage: 1 MG, EACH EVENING
     Dates: start: 20061219, end: 20070112
  52. INVEGA [Concomitant]
     Dosage: 9 MG, EACH EVENING
     Dates: start: 20081104, end: 20081110
  53. LEVOTHYROXINE SODIUM [Concomitant]
     Dosage: 25 UG, EACH MORNING
     Dates: start: 20081216

REACTIONS (7)
  - BLOOD CHOLESTEROL INCREASED [None]
  - BLOOD GLUCOSE INCREASED [None]
  - BLOOD TRIGLYCERIDES INCREASED [None]
  - GRANULOCYTOPENIA [None]
  - HAEMATOCRIT DECREASED [None]
  - HAEMOGLOBIN DECREASED [None]
  - OVERDOSE [None]
